FAERS Safety Report 7312663-1 (Version None)
Quarter: 2011Q1

REPORT INFORMATION
  Report Type: 
  Country: None (occurrence: None)
  Receive Date: 20110224
  Receipt Date: 20101227
  Transmission Date: 20110831
  Serious: No
  Sender: FDA-Public Use
  Company Number: US-ASTRAZENECA-2010SE60909

PATIENT
  Sex: Female

DRUGS (2)
  1. VIMOVO [Suspect]
     Dosage: DAILY
     Route: 048
  2. VIMOVO [Suspect]
     Indication: NECK INJURY
     Dosage: BID
     Route: 048

REACTIONS (2)
  - INFLAMMATION [None]
  - INCORRECT DOSE ADMINISTERED [None]
